FAERS Safety Report 24969079 (Version 2)
Quarter: 2025Q2

REPORT INFORMATION
  Report Type: Report from Study
  Country: US (occurrence: US)
  Receive Date: 20250214
  Receipt Date: 20250414
  Transmission Date: 20250716
  Serious: Yes (Hospitalization, Other)
  Sender: ABBVIE
  Company Number: US-ABBVIE-6134002

PATIENT
  Sex: Female

DRUGS (2)
  1. VENCLEXTA [Suspect]
     Active Substance: VENETOCLAX
     Indication: Lung neoplasm malignant
     Route: 048
     Dates: start: 202212
  2. VENCLEXTA [Suspect]
     Active Substance: VENETOCLAX
     Indication: Lung neoplasm malignant
     Dosage: VENCLEXTA TAKEN FOR 21 DAYS ON, 7 DAYS OFF
     Route: 048
     Dates: start: 20201012

REACTIONS (5)
  - Brain neoplasm malignant [Unknown]
  - Ear neoplasm malignant [Unknown]
  - Balance disorder [Unknown]
  - Fall [Unknown]
  - Craniofacial fracture [Unknown]
